FAERS Safety Report 5935897-7 (Version None)
Quarter: 2008Q4

REPORT INFORMATION
  Report Type: 
  Country: None (occurrence: None)
  Receive Date: 20081030
  Receipt Date: 20071106
  Transmission Date: 20090506
  Serious: No
  Sender: FDA-Public Use
  Company Number: A0691715A

PATIENT
  Age: 53 Year
  Sex: Female

DRUGS (7)
  1. IMITREX [Suspect]
     Indication: MIGRAINE
     Dosage: 5MG VARIABLE DOSE
     Route: 045
     Dates: start: 20071013, end: 20071015
  2. VICODIN [Concomitant]
  3. FLEXERIL [Concomitant]
  4. FLONASE [Concomitant]
  5. ZYRTEC [Concomitant]
  6. IBUPROFEN [Concomitant]
  7. PREVACID [Concomitant]

REACTIONS (1)
  - DRUG INEFFECTIVE [None]
